FAERS Safety Report 5896078-9 (Version None)
Quarter: 2008Q3

REPORT INFORMATION
  Report Type: 
  Country: None (occurrence: None)
  Receive Date: 20080924
  Receipt Date: 20080915
  Transmission Date: 20090109
  Serious: Yes (Other)
  Sender: FDA-Public Use
  Company Number: GB-AMGEN-US308415

PATIENT
  Sex: Male

DRUGS (10)
  1. ENBREL [Suspect]
     Indication: DRUG USE FOR UNKNOWN INDICATION
     Route: 058
  2. DIGOXIN [Concomitant]
     Dosage: UNKNOWN
     Route: 065
  3. CO-AMILOFRUSE [Concomitant]
     Dosage: UNKNOWN
     Route: 065
  4. ACETAMINOPHEN W/ CODEINE [Concomitant]
     Dosage: UNKNOWN
     Route: 065
  5. METHOTREXATE [Concomitant]
     Dosage: UNKNOWN
     Route: 065
  6. FOLIC ACID [Concomitant]
     Dosage: UNKNOWN
     Route: 065
  7. WARFARIN SODIUM [Concomitant]
     Dosage: UNKNOWN
     Route: 065
  8. FENTANYL [Concomitant]
     Dosage: UNKNOWN
     Route: 065
  9. RAMIPRIL [Concomitant]
     Dosage: UNKNOWN
     Route: 065
  10. PREDNISOLONE [Concomitant]
     Dosage: UNKNOWN
     Route: 065

REACTIONS (3)
  - ERYTHEMA [None]
  - FLUSHING [None]
  - SWELLING FACE [None]
